FAERS Safety Report 14339175 (Version 1)
Quarter: 2017Q4

REPORT INFORMATION
  Report Type: Spontaneous
  Country: US (occurrence: US)
  Receive Date: 20171230
  Receipt Date: 20171230
  Transmission Date: 20180321
  Serious: Yes (Other)
  Sender: FDA-Public Use
  Company Number: US-BAUSCH-BL-2017-036366

PATIENT
  Age: 32 Year
  Sex: Female

DRUGS (3)
  1. FOLINIC ACID [Concomitant]
     Active Substance: LEUCOVORIN
     Indication: ADENOCARCINOMA
     Dosage: 500 MG/M2; CYCLICAL
  2. IRINOTECAN [Concomitant]
     Active Substance: IRINOTECAN
     Indication: ADENOCARCINOMA
     Dosage: IRINOTECAN 100 MG/M2; CYCLICAL
  3. FLUOROURACIL. [Suspect]
     Active Substance: FLUOROURACIL
     Indication: ADENOCARCINOMA
     Dosage: 5-FU 1600 MG/M2; CYCLICAL
     Route: 048

REACTIONS (2)
  - Angina pectoris [Recovered/Resolved]
  - Cardiotoxicity [Recovered/Resolved]
